FAERS Safety Report 4715469-2 (Version None)
Quarter: 2005Q3

REPORT INFORMATION
  Report Type: 
  Country: None (occurrence: None)
  Receive Date: 20050713
  Receipt Date: 20050701
  Transmission Date: 20060218
  Serious: Yes (Hospitalization, Other)
  Sender: FDA-Public Use
  Company Number: KII-2005-0017347

PATIENT
  Age: 41 Year
  Sex: Female

DRUGS (5)
  1. MORPHINE SULFATE [Suspect]
     Dosage: SEE TEXT, ORAL
     Route: 048
  2. TIZANIDINE HCL [Suspect]
     Dosage: SEE TEXT, ORAL
     Route: 048
  3. DIAZEPAM [Suspect]
     Dosage: SEE TEXT, ORAL
     Route: 048
  4. CLONAZEPAM [Suspect]
     Dosage: SEE TEXT, ORAL
     Route: 048
  5. MARIJUANA (CANNABIS) [Suspect]
     Dosage: INHALATION
     Route: 055

REACTIONS (8)
  - INTENTIONAL MISUSE [None]
  - MULTIPLE DRUG OVERDOSE [None]
  - OXYGEN SATURATION DECREASED [None]
  - POLYSUBSTANCE ABUSE [None]
  - RESPIRATORY RATE DECREASED [None]
  - RESPIRATORY RATE INCREASED [None]
  - SINUS TACHYCARDIA [None]
  - SOMNOLENCE [None]
